FAERS Safety Report 8540549-3 (Version None)
Quarter: 2012Q3

REPORT INFORMATION
  Report Type: 
  Country: None (occurrence: None)
  Receive Date: 20120726
  Receipt Date: 20110825
  Transmission Date: 20120928
  Serious: No
  Sender: FDA-Public Use
  Company Number: US-ASTRAZENECA-2011SE47234

PATIENT
  Age: 63 Year
  Sex: Female
  Weight: 61.2 kg

DRUGS (8)
  1. RELAFEN [Concomitant]
  2. HYDROXYCHLOROQUINE SULFATE [Concomitant]
  3. ZOLOFT [Concomitant]
  4. SEROQUEL [Suspect]
     Route: 048
  5. METOPROLOL TARTRATE [Concomitant]
  6. FAMOTIDINE [Concomitant]
  7. SEROQUEL [Suspect]
     Route: 048
     Dates: start: 20090101
  8. NEURONTIN [Concomitant]

REACTIONS (11)
  - SOMNOLENCE [None]
  - DRUG INEFFECTIVE [None]
  - DIARRHOEA [None]
  - CHILLS [None]
  - COLD SWEAT [None]
  - INSOMNIA [None]
  - NAUSEA [None]
  - DRUG WITHDRAWAL SYNDROME [None]
  - DRUG DOSE OMISSION [None]
  - OSTEOARTHRITIS [None]
  - MALAISE [None]
